FAERS Safety Report 5275830-7 (Version None)
Quarter: 2007Q1

REPORT INFORMATION
  Report Type: 
  Country: None (occurrence: None)
  Receive Date: 20061213
  Receipt Date: 20041123
  Transmission Date: 20070707
  Serious: No
  Sender: FDA-Public Use
  Company Number: 2004UW24196

PATIENT
  Age: 51 Year
  Sex: Male
  Weight: 81.646 kg

DRUGS (8)
  1. LITHIUM CARBONATE [Concomitant]
  2. ZOLOFT [Concomitant]
  3. KLINOPIN [Concomitant]
  4. LAMICTAL [Concomitant]
  5. RESTORIL [Concomitant]
  6. ZYPREXA [Concomitant]
  7. RISPERDAL [Concomitant]
  8. SEROQUEL [Suspect]
     Indication: BIPOLAR DISORDER
     Dosage: 300 MG QD PO
     Route: 048
     Dates: start: 20031101, end: 20040501

REACTIONS (1)
  - TARDIVE DYSKINESIA [None]
